FAERS Safety Report 4628749-6 (Version None)
Quarter: 2005Q2

REPORT INFORMATION
  Report Type: 
  Country: None (occurrence: None)
  Receive Date: 20050406
  Receipt Date: 20050322
  Transmission Date: 20051028
  Serious: Yes (Other)
  Sender: FDA-Public Use
  Company Number: 163-20785-05020515

PATIENT
  Age: 51 Year
  Sex: Female

DRUGS (1)
  1. THALOMID [Suspect]
     Indication: MALIGNANT MELANOMA
     Dosage: 200 MG DAILY ORAL
     Route: 048
     Dates: start: 20041129, end: 20050201

REACTIONS (4)
  - BLOOD FOLLICLE STIMULATING HORMONE INCREASED [None]
  - BLOOD LUTEINISING HORMONE INCREASED [None]
  - LABORATORY TEST INTERFERENCE [None]
  - URINE HUMAN CHORIONIC GONADOTROPIN INCREASED [None]
